FAERS Safety Report 6633893-8 (Version None)
Quarter: 2010Q1

REPORT INFORMATION
  Report Type: 
  Country: None (occurrence: None)
  Receive Date: 20100315
  Receipt Date: 20100309
  Transmission Date: 20100710
  Serious: Yes (Other)
  Sender: FDA-Public Use
  Company Number: US-ELI_LILLY_AND_COMPANY-US201001004692

PATIENT
  Sex: Male

DRUGS (7)
  1. HUMALOG [Suspect]
     Dosage: 5 U, 3/D
     Dates: start: 20080101
  2. HUMALOG [Suspect]
     Dosage: 5 U, 3/D
     Dates: start: 20080101
  3. HUMALOG [Suspect]
     Dosage: UNK, AS NEEDED
     Dates: start: 20080101
  4. HUMALOG [Suspect]
     Dosage: UNK, AS NEEDED
     Dates: start: 20080101
  5. METFORMIN HCL [Concomitant]
     Dosage: 1000 MG, EACH MORNING
  6. METFORMIN HCL [Concomitant]
     Dosage: 500 MG, OTHER
  7. METFORMIN HCL [Concomitant]
     Dosage: 500 MG, EACH EVENING

REACTIONS (3)
  - BLINDNESS [None]
  - MACULAR DEGENERATION [None]
  - WRONG TECHNIQUE IN DRUG USAGE PROCESS [None]
